FAERS Safety Report 7760014-0 (Version None)
Quarter: 2011Q3

REPORT INFORMATION
  Report Type: 
  Country: None (occurrence: None)
  Receive Date: 20110919
  Receipt Date: 20110907
  Transmission Date: 20111222
  Serious: Yes (Other)
  Sender: FDA-Public Use
  Company Number: US-BAYER-2011-060716

PATIENT
  Age: 73 Year
  Sex: Female
  Weight: 66.44 kg

DRUGS (7)
  1. POTASSIUM CHLORIDE [Concomitant]
     Dosage: 20 MG, QD
  2. SARGRAMOSTIM [Suspect]
     Indication: METASTATIC MALIGNANT MELANOMA
     Dosage: 213 ?G DAILY X 2 WEKKS
     Dates: start: 20110630, end: 20110630
  3. BENADRYL [Concomitant]
     Indication: PREMEDICATION
     Dosage: 25 MG, UNK
     Route: 048
  4. MDX-010 [Suspect]
     Indication: METASTATIC MALIGNANT MELANOMA
     Dosage: 670 MG EVERY 3 WEEKS X 4 DOSES
     Dates: start: 20110609, end: 20110811
  5. PEPCID [Concomitant]
     Indication: PREMEDICATION
     Dosage: 40 MG, UNK
  6. SARGRAMOSTIM [Suspect]
     Dosage: 213 ?G DAILY X 2 WEKKS
     Dates: start: 20110811, end: 20110824
  7. VITAMIN TAB [Concomitant]

REACTIONS (7)
  - DYSPNOEA [None]
  - CHEST DISCOMFORT [None]
  - BACK PAIN [None]
  - ARTHRALGIA [None]
  - MUSCLE SPASMS [None]
  - FLUSHING [None]
  - HYPERHIDROSIS [None]
